FAERS Safety Report 6246278-3 (Version None)
Quarter: 2009Q2

REPORT INFORMATION
  Report Type: 
  Country: None (occurrence: None)
  Receive Date: 20090626
  Receipt Date: 20090615
  Transmission Date: 20091009
  Serious: Yes (Hospitalization)
  Sender: FDA-Public Use
  Company Number: PHHY2009GB17817

PATIENT
  Sex: Female

DRUGS (5)
  1. CLOZARIL [Suspect]
     Indication: SCHIZOAFFECTIVE DISORDER
     Dosage: UNK
     Dates: start: 20071221
  2. OLANZAPINE [Concomitant]
     Dosage: 25 MG, UNK
     Route: 048
     Dates: start: 20090503
  3. HALOPERIDOL [Concomitant]
  4. LORAZEPAM [Concomitant]
  5. VALPROATE SODIUM [Concomitant]
     Dosage: 750 MG/DAY

REACTIONS (5)
  - AGGRESSION [None]
  - DRUG DOSE OMISSION [None]
  - EOSINOPHIL COUNT INCREASED [None]
  - INAPPROPRIATE AFFECT [None]
  - MENTAL IMPAIRMENT [None]
